FAERS Safety Report 9281162 (Version 1)
Quarter: 2013Q2

REPORT INFORMATION
  Report Type: Spontaneous
  Country: US (occurrence: US)
  Receive Date: 20130509
  Receipt Date: 20130509
  Transmission Date: 20140414
  Serious: No
  Sender: FDA-Public Use
  Company Number: US-ASTRAZENECA-2013SE24956

PATIENT
  Age: 68 Year
  Sex: Female

DRUGS (2)
  1. TOPROL XL [Suspect]
     Route: 048
  2. TOPROL XL [Suspect]
     Dosage: GENERIC
     Route: 048

REACTIONS (8)
  - Tearfulness [Unknown]
  - Blood pressure increased [Unknown]
  - Depressed mood [Unknown]
  - Dizziness [Unknown]
  - Memory impairment [Unknown]
  - Palpitations [Unknown]
  - Intentional drug misuse [Unknown]
  - Drug dose omission [Unknown]
